FAERS Safety Report 8328795-5 (Version None)
Quarter: 2012Q2

REPORT INFORMATION
  Report Type: 
  Country: None (occurrence: None)
  Receive Date: 20120502
  Receipt Date: 20120423
  Transmission Date: 20120825
  Serious: Yes (Other)
  Sender: FDA-Public Use
  Company Number: US-ELI_LILLY_AND_COMPANY-US201204008276

PATIENT
  Age: 72 Year
  Sex: Male

DRUGS (5)
  1. EFFIENT [Suspect]
     Indication: MYOCARDIAL INFARCTION
     Dosage: 10 MG, QD
     Dates: end: 20120416
  2. TOPROL-XL [Concomitant]
  3. MICARDIS [Concomitant]
  4. LIPITOR [Concomitant]
  5. METFORMIN HCL [Concomitant]

REACTIONS (1)
  - SPONDYLOLISTHESIS [None]
